FAERS Safety Report 16942455 (Version 2)
Quarter: 2019Q4

REPORT INFORMATION
  Report Type: Spontaneous
  Country: US (occurrence: US)
  Receive Date: 20191021
  Receipt Date: 20191119
  Transmission Date: 20200122
  Serious: No
  Sender: FDA-Public Use
  Company Number: US-SA-2019SA285085

PATIENT
  Age: 75 Year
  Sex: Female

DRUGS (1)
  1. PRALUENT [Suspect]
     Active Substance: ALIROCUMAB
     Indication: HYPERCHOLESTEROLAEMIA
     Dosage: 75 MG, QOW
     Route: 058
     Dates: start: 20190722

REACTIONS (4)
  - Nasopharyngitis [Unknown]
  - Paranasal sinus discomfort [Unknown]
  - Respiratory tract congestion [Unknown]
  - Cough [Unknown]

NARRATIVE: CASE EVENT DATE: 2019
